FAERS Safety Report 19122728 (Version 2)
Quarter: 2021Q2

REPORT INFORMATION
  Report Type: Report from Study
  Country: US (occurrence: US)
  Receive Date: 20210412
  Receipt Date: 20210419
  Transmission Date: 20210717
  Serious: Yes (Hospitalization, Other)
  Sender: FDA-Public Use
  Company Number: US-HBP-2021US021934

PATIENT
  Sex: Male

DRUGS (3)
  1. VALCHLOR [Suspect]
     Active Substance: MECHLORETHAMINE
     Indication: CUTANEOUS T-CELL LYMPHOMA
     Dosage: UNK, QD
     Route: 061
     Dates: start: 202003
  2. DESONIDE. [Concomitant]
     Active Substance: DESONIDE
     Dosage: UNK, UNKNOWN
  3. PLAVIX [Concomitant]
     Active Substance: CLOPIDOGREL BISULFATE
     Dosage: UNK, UNKNOWN

REACTIONS (2)
  - Therapy partial responder [Unknown]
  - Pneumonia [Unknown]
